FAERS Safety Report 10060554 (Version 2)
Quarter: 2014Q2

REPORT INFORMATION
  Report Type: Report from Study
  Country: US (occurrence: US)
  Receive Date: 20140404
  Receipt Date: 20140419
  Transmission Date: 20141212
  Serious: Yes (Death, Hospitalization, Other)
  Sender: FDA-Public Use
  Company Number: US-009507513-1403USA013269

PATIENT
  Sex: 0

DRUGS (7)
  1. PRINIVIL [Suspect]
     Indication: HYPERTENSION
     Dosage: 10 MG, TIW, DOSE WAS DOUBLED EVERY 2-4 WEEKS UP TO A MAX DOSE OF 100
     Route: 048
  2. PRINIVIL [Suspect]
     Dosage: MAXIMUM DOSE: 40 MG, TIW, AFTER DIALYSIS
  3. FELODIPINE [Concomitant]
     Indication: BLOOD PRESSURE
     Dosage: 10 MG, QD
  4. AMLODIPINE [Concomitant]
     Indication: BLOOD PRESSURE
     Dosage: 10 MG, QD
  5. DOXAZOSIN MESYLATE [Concomitant]
     Indication: BLOOD PRESSURE
  6. MINOXIDIL [Concomitant]
     Indication: BLOOD PRESSURE
  7. GUANFACINE HYDROCHLORIDE [Concomitant]
     Indication: BLOOD PRESSURE

REACTIONS (4)
  - Cardiac death [Fatal]
  - Cardiac failure congestive [Unknown]
  - Myocardial infarction [Unknown]
  - Cerebrovascular accident [Unknown]
